FAERS Safety Report 7262162-0 (Version None)
Quarter: 2011Q1

REPORT INFORMATION
  Report Type: 
  Country: None (occurrence: None)
  Receive Date: 20110130
  Receipt Date: 20101214
  Transmission Date: 20110831
  Serious: No
  Sender: FDA-Public Use
  Company Number: US-ABBOTT-10P-163-0691607-00

PATIENT
  Age: 45 Year
  Sex: Female

DRUGS (10)
  1. NEXIUM [Concomitant]
     Indication: GASTROOESOPHAGEAL REFLUX DISEASE
  2. HUMIRA [Suspect]
     Indication: RHEUMATOID ARTHRITIS
     Dates: start: 20101101
  3. ACETAMINOPHEN AND HYDROCODONE BITARTRATE [Concomitant]
     Indication: PAIN
     Dosage: 10/25MG EVERY 8 HOURS
  4. HYDROCHLOROTHIAZIDE [Concomitant]
     Indication: HYPERTENSION
  5. LISINOPRIL [Concomitant]
     Indication: HYPERTENSION
  6. SERTRALINE HYDROCHLORIDE [Concomitant]
     Indication: DEPRESSION
  7. PREDNISONE [Concomitant]
     Indication: PRODUCT USED FOR UNKNOWN INDICATION
  8. ETODOLAC [Concomitant]
     Indication: PAIN
  9. LORATADINE [Concomitant]
     Indication: HYPERSENSITIVITY
  10. METHOCARBAMOL [Concomitant]
     Indication: MUSCLE RELAXANT THERAPY

REACTIONS (5)
  - AGITATION [None]
  - URTICARIA [None]
  - PRURITUS [None]
  - INJECTION SITE VESICLES [None]
  - INJECTION SITE HAEMORRHAGE [None]
